FAERS Safety Report 9203665 (Version 1)
Quarter: 2013Q2

REPORT INFORMATION
  Report Type: Spontaneous
  Country: US (occurrence: US)
  Receive Date: 20130402
  Receipt Date: 20130402
  Transmission Date: 20140414
  Serious: No
  Sender: FDA-Public Use
  Company Number: PHEH2013US004426

PATIENT
  Sex: Male

DRUGS (7)
  1. TASIGNA [Suspect]
     Indication: CHRONIC MYELOMONOCYTIC LEUKAEMIA
     Dosage: 300 MG, BID
     Route: 048
     Dates: start: 20111212
  2. LISINOPRIL [Concomitant]
     Route: 048
  3. FLECAINIDE ACETATE [Concomitant]
  4. BIMATOPROST [Concomitant]
  5. RIVAROXABAN [Concomitant]
     Dosage: 10 MG, QD
     Route: 048
     Dates: start: 20120814
  6. METOPROLOL SUCCINATE [Concomitant]
     Dosage: 75 MG, QD
     Route: 048
     Dates: start: 20130213
  7. PROCHLORPERAZINE [Concomitant]
     Dosage: 10 MG, Q6H
     Route: 048
     Dates: start: 20111212

REACTIONS (1)
  - Pollakiuria [Unknown]
